FAERS Safety Report 4450685-9 (Version None)
Quarter: 2004Q3

REPORT INFORMATION
  Report Type: 
  Country: None (occurrence: None)
  Receive Date: 20040914
  Receipt Date: 20040914
  Transmission Date: 20050211
  Serious: Yes (Hospitalization)
  Sender: FDA-Public Use
  Company Number: None

PATIENT
  Age: 42 Year
  Weight: 99.3377 kg

DRUGS (14)
  1. PHENYTOIN [Suspect]
     Indication: CONVULSION
     Dosage: 300MG  TID  ORAL
     Route: 048
     Dates: start: 20031001, end: 20040426
  2. GREEN [Suspect]
     Dates: start: 20040412, end: 20040426
  3. BACLOFEN [Concomitant]
  4. CELEXA [Concomitant]
  5. TRAZODONE [Concomitant]
  6. GABAPENTIN [Concomitant]
  7. ZOLMITRIPTAN [Concomitant]
  8. DIAZEPAM [Concomitant]
  9. ATENOLOL [Concomitant]
  10. LIPITOR [Concomitant]
  11. DULCOLAX [Concomitant]
  12. OXYBUTYNIN [Concomitant]
  13. PSEUDOEPHEDRINE HCL [Concomitant]
  14. VICODIN [Concomitant]

REACTIONS (1)
  - DRUG TOXICITY [None]
